FAERS Safety Report 9625617 (Version 1)
Quarter: 2013Q4

REPORT INFORMATION
  Report Type: Spontaneous
  Country: US (occurrence: None)
  Receive Date: 20131015
  Receipt Date: 20131015
  Transmission Date: 20140711
  Serious: No
  Sender: FDA-Public Use
  Company Number: None

PATIENT
  Age: 86 Year
  Sex: Female

DRUGS (5)
  1. FORTEO [Suspect]
     Indication: OSTEOPOROSIS
     Route: 058
  2. CITALOPRAM [Concomitant]
  3. ATORVASTATIN [Concomitant]
  4. FAMOTIDINE [Concomitant]
  5. PREDNISONE [Concomitant]

REACTIONS (3)
  - Abdominal discomfort [None]
  - Depression [None]
  - Apparent death [None]
